FAERS Safety Report 7626360-6 (Version None)
Quarter: 2011Q3

REPORT INFORMATION
  Report Type: 
  Country: None (occurrence: None)
  Receive Date: 20110721
  Receipt Date: 20110718
  Transmission Date: 20111222
  Serious: Yes (Death)
  Sender: FDA-Public Use
  Company Number: PHHY2011US62325

PATIENT
  Sex: Male
  Weight: 49 kg

DRUGS (1)
  1. RECLAST [Suspect]
     Indication: OSTEOPOROSIS
     Dosage: 5 MG YEARLY
     Route: 042
     Dates: start: 20100915, end: 20100915

REACTIONS (2)
  - VOLVULUS [None]
  - LARGE INTESTINAL OBSTRUCTION [None]
